FAERS Safety Report 13953776 (Version 1)
Quarter: 2017Q3

REPORT INFORMATION
  Report Type: Spontaneous
  Country: US (occurrence: US)
  Receive Date: 20170908
  Receipt Date: 20170908
  Transmission Date: 20171128
  Serious: Yes (Hospitalization, Other)
  Sender: FDA-Public Use
  Company Number: None

PATIENT
  Age: 69 Year
  Sex: Male

DRUGS (13)
  1. ASPIRIN. [Concomitant]
     Active Substance: ASPIRIN
  2. BUMEX [Concomitant]
     Active Substance: BUMETANIDE
  3. POTASSIUM [Concomitant]
     Active Substance: POTASSIUM
  4. VOTRIENT [Suspect]
     Active Substance: PAZOPANIB HYDROCHLORIDE
     Indication: RENAL CANCER
     Route: 048
     Dates: start: 20170713, end: 20170820
  5. METFORMIN [Concomitant]
     Active Substance: METFORMIN HYDROCHLORIDE
  6. GLIPIZIDE. [Concomitant]
     Active Substance: GLIPIZIDE
  7. LISINOPRIL. [Concomitant]
     Active Substance: LISINOPRIL
  8. KEPPRA XR [Concomitant]
     Active Substance: LEVETIRACETAM
  9. PROTONIX [Concomitant]
     Active Substance: PANTOPRAZOLE SODIUM
  10. DEXAMETHASONE. [Concomitant]
     Active Substance: DEXAMETHASONE
  11. VITAMIN C [Concomitant]
     Active Substance: ASCORBIC ACID
  12. ALLPURINOL [Concomitant]
     Active Substance: ALLOPURINOL
  13. ATENOLOL/CHLORTHALIDONE [Concomitant]
     Active Substance: ATENOLOL\CHLORTHALIDONE

REACTIONS (4)
  - Weight decreased [None]
  - Hepatic failure [None]
  - Acute kidney injury [None]
  - Muscular weakness [None]

NARRATIVE: CASE EVENT DATE: 20170820
